FAERS Safety Report 8305664-8 (Version None)
Quarter: 2012Q2

REPORT INFORMATION
  Report Type: 
  Country: None (occurrence: None)
  Receive Date: 20120423
  Receipt Date: 20120416
  Transmission Date: 20120825
  Serious: Yes (Other)
  Sender: FDA-Public Use
  Company Number: US-PFIZER INC-2011276517

PATIENT
  Sex: Female

DRUGS (5)
  1. EFFEXOR XR [Suspect]
     Dosage: UNK
  2. ACCUPRIL [Suspect]
     Dosage: UNK
  3. DILANTIN-125 [Suspect]
     Dosage: 50MG, UNK
  4. DILANTIN-125 [Suspect]
     Dosage: 200 MG, UNK
  5. DILANTIN-125 [Suspect]
     Dosage: UNK

REACTIONS (4)
  - CHOKING [None]
  - INCOHERENT [None]
  - CONVULSION [None]
  - AMNESIA [None]
